FAERS Safety Report 5647925-7 (Version None)
Quarter: 2008Q1

REPORT INFORMATION
  Report Type: 
  Country: None (occurrence: None)
  Receive Date: 20080228
  Receipt Date: 20080220
  Transmission Date: 20080703
  Serious: Yes (Other)
  Sender: FDA-Public Use
  Company Number: GXKR2008US01808

PATIENT
  Age: 60 Year
  Sex: Male
  Weight: 115 kg

DRUGS (13)
  1. FENOFIBRATE [Suspect]
     Indication: HYPERTRIGLYCERIDAEMIA
     Dosage: ORAL, ORAL
     Route: 048
  2. FUROSEMIDE [Suspect]
     Dosage: ORAL; 40 MG, BID, ORAL
     Route: 048
  3. ASPIRIN [Suspect]
     Dosage: ORAL
     Route: 048
  4. EZETIMIBE W/SIMVASTATIN (EZETIMIBE, SIMVASTATIN) UNKNOWN, 40/10 MG [Concomitant]
  5. CLONIDINE (CLONIDINE) UNKNOWN [Concomitant]
  6. HYDRALAZINE (HYDRALAZINE) UNKNOWN [Concomitant]
  7. AMLODIPINE [Concomitant]
  8. ATENOLOL (ATENOLOL) UNKNOWN [Concomitant]
  9. PANTOPRAZOLE SODIUM [Concomitant]
  10. PIOGLITAZONE (PIOGLITAZONE) UNKNOWN [Concomitant]
  11. INSULIN GLARGINE (INSULIN GLARGINE) UNKNOWN [Concomitant]
  12. INSULIN LISPRO (INSULIN LISPRO) UNKNOWN [Concomitant]
  13. QUININE SULFATE (QUININE SULFATE) UNKNOWN [Concomitant]

REACTIONS (4)
  - BLOOD CREATININE INCREASED [None]
  - BLOOD UREA INCREASED [None]
  - GLOMERULAR FILTRATION RATE DECREASED [None]
  - RENAL IMPAIRMENT [None]
